FAERS Safety Report 8878423 (Version 1)
Quarter: 2012Q4

REPORT INFORMATION
  Report Type: 
  Country: US (occurrence: US)
  Receive Date: 20121025
  Receipt Date: 20121025
  Transmission Date: 20130627
  Serious: No
  Sender: FDA-Public Use
  Company Number: US-AMGEN-USASP2012022264

PATIENT
  Age: 65 Year
  Sex: Female
  Weight: 69.39 kg

DRUGS (14)
  1. ENBREL [Suspect]
     Indication: PRODUCT USED FOR UNKNOWN INDICATION
     Dosage: 50 mg, qwk
     Route: 058
  2. OXYCODONE [Concomitant]
     Dosage: 10 mg, UNK
  3. VITAMIN D NOS [Concomitant]
     Dosage: UNK
  4. CALCIUM [Concomitant]
     Dosage: UNK
  5. LUNESTA [Concomitant]
     Dosage: 1 mg, UNK
  6. BENADRYL                           /00000402/ [Concomitant]
     Dosage: 25 mg, UNK
  7. LEXAPRO [Concomitant]
     Dosage: 20 mg, UNK
  8. ATENOLOL W/CHLORTALIDONE [Concomitant]
     Dosage: UNK
  9. ALLERGY MEDICATION [Concomitant]
     Dosage: UNK
  10. STOOL SOFTENER [Concomitant]
     Dosage: 240 mg, UNK
  11. LICORICE                           /01125801/ [Concomitant]
     Dosage: 500 mg, UNK
  12. SIMVASTATIN [Concomitant]
     Dosage: 10 mg, UNK
  13. CYCLOBENZAPRINE [Concomitant]
     Dosage: 10 mg, UNK
  14. OXYCONTIN [Concomitant]
     Dosage: 10 mg, UNK

REACTIONS (3)
  - Blood urine present [Recovered/Resolved]
  - Dizziness [Unknown]
  - Anaemia [Recovered/Resolved]
